FAERS Safety Report 8402693-0 (Version None)
Quarter: 2012Q2

REPORT INFORMATION
  Report Type: 
  Country: None (occurrence: None)
  Receive Date: 20120601
  Receipt Date: 20110730
  Transmission Date: 20120825
  Serious: No
  Sender: FDA-Public Use
  Company Number: US-NOVEN-11US002892

PATIENT
  Sex: Male
  Weight: 32.2 kg

DRUGS (5)
  1. ABILIFY [Concomitant]
     Indication: AFFECTIVE DISORDER
     Dosage: 2 MG, BID
     Route: 048
     Dates: start: 20090901
  2. MELATONIN [Concomitant]
     Indication: SLEEP DISORDER
     Dosage: 5 MG, BEDTIME
     Route: 048
     Dates: start: 20070101
  3. DAYTRANA [Suspect]
     Indication: ATTENTION DEFICIT/HYPERACTIVITY DISORDER
     Dosage: 20 MG, QD
     Route: 062
     Dates: start: 20101201
  4. PREVACID [Concomitant]
     Indication: ABDOMINAL DISCOMFORT
     Dosage: 15 MG, BID
     Route: 048
     Dates: start: 20110501
  5. METHYLPHENIDATE [Concomitant]
     Indication: ATTENTION DEFICIT/HYPERACTIVITY DISORDER
     Dosage: 5 MG, QD
     Route: 048
     Dates: start: 20110401

REACTIONS (4)
  - PRODUCT QUALITY ISSUE [None]
  - NO ADVERSE EVENT [None]
  - DRUG DOSE OMISSION [None]
  - WRONG TECHNIQUE IN DRUG USAGE PROCESS [None]
